FAERS Safety Report 6874418-1 (Version None)
Quarter: 2010Q3

REPORT INFORMATION
  Report Type: 
  Country: None (occurrence: None)
  Receive Date: 20100723
  Receipt Date: 20100723
  Transmission Date: 20110219
  Serious: No
  Sender: FDA-Public Use
  Company Number: None

PATIENT
  Sex: Female
  Weight: 54 kg

DRUGS (2)
  1. CARBOPLATIN [Suspect]
     Dosage: 483.6 MG
  2. TAXOL [Suspect]
     Dosage: 267.78 MG

REACTIONS (1)
  - DRUG TOXICITY [None]
